FAERS Safety Report 8866316 (Version 1)
Quarter: 2012Q4

REPORT INFORMATION
  Report Type: 
  Country: US (occurrence: US)
  Receive Date: 20121025
  Receipt Date: 20121025
  Transmission Date: 20130627
  Serious: No
  Sender: FDA-Public Use
  Company Number: US-PFIZER INC-2012265099

PATIENT

DRUGS (1)
  1. TOVIAZ [Suspect]
     Dosage: 4 mg, UNK

REACTIONS (2)
  - Nocturia [Unknown]
  - Drug ineffective [Unknown]
